FAERS Safety Report 9739925 (Version 1)
Quarter: 2013Q4

REPORT INFORMATION
  Report Type: Spontaneous
  Country: US (occurrence: US)
  Receive Date: 20131209
  Receipt Date: 20131209
  Transmission Date: 20140711
  Serious: Yes (Other)
  Sender: FDA-Public Use
  Company Number: US-TEVA-448892USA

PATIENT
  Sex: 0

DRUGS (2)
  1. ACICLOVIR [Suspect]
  2. TNF ALPHA BLOCKER [Concomitant]

REACTIONS (2)
  - Lymphoma [Unknown]
  - Neoplasm malignant [Unknown]
